FAERS Safety Report 8825922 (Version 2)
Quarter: 2012Q4

REPORT INFORMATION
  Report Type: 
  Country: FR (occurrence: FR)
  Receive Date: 20121005
  Receipt Date: 20121030
  Transmission Date: 20130627
  Serious: Yes (Other)
  Sender: FDA-Public Use
  Company Number: FR-EISAI INC-E3810-05966-SPO-FR

PATIENT
  Sex: Male

DRUGS (1)
  1. PARIET [Suspect]
     Route: 048

REACTIONS (1)
  - Asthma [Unknown]
